FAERS Safety Report 7152386-5 (Version None)
Quarter: 2010Q4

REPORT INFORMATION
  Report Type: 
  Country: None (occurrence: None)
  Receive Date: 20101123
  Receipt Date: 20101112
  Transmission Date: 20110411
  Serious: Yes (Hospitalization)
  Sender: FDA-Public Use
  Company Number: 021942

PATIENT
  Sex: Female
  Weight: 95 kg

DRUGS (5)
  1. LACOSAMIDE [Suspect]
     Indication: EPILEPSY
     Dosage: (250/300 ORAL), (150/150 ORAL)
     Route: 048
     Dates: start: 20100501, end: 20100716
  2. LACOSAMIDE [Suspect]
     Indication: EPILEPSY
     Dosage: (250/300 ORAL), (150/150 ORAL)
     Route: 048
     Dates: start: 20100717
  3. ZONEGRAN [Concomitant]
  4. RISPERDAL [Concomitant]
  5. ZIPRASIDONE HCL [Concomitant]

REACTIONS (3)
  - DISTURBANCE IN ATTENTION [None]
  - ELECTROENCEPHALOGRAM ABNORMAL [None]
  - ENCEPHALOPATHY [None]
